FAERS Safety Report 8099907 (Version 7)
Quarter: 2013Q4

REPORT INFORMATION
  Report Type: Spontaneous
  Country: US (occurrence: US)
  Receive Date: 20110822
  Receipt Date: 20131122
  Transmission Date: 20140711
  Serious: Yes (Other)
  Sender: FDA-Public Use
  Company Number: US-ROCHE-797291

PATIENT
  Age: 46 Year
  Sex: Female
  Weight: 96.25 kg

DRUGS (5)
  1. ACCUTANE [Suspect]
     Indication: ROSACEA
     Route: 048
     Dates: start: 19880518, end: 19881006
  2. ACCUTANE [Suspect]
     Route: 048
     Dates: start: 19930120, end: 19930531
  3. ACCUTANE [Suspect]
     Route: 048
  4. LOZOL [Concomitant]
  5. TYLENOL [Concomitant]

REACTIONS (11)
  - Colitis ulcerative [Unknown]
  - Inflammatory bowel disease [Unknown]
  - Depression [Unknown]
  - Injury [Unknown]
  - Large intestine polyp [Unknown]
  - Dry eye [Unknown]
  - Lip dry [Unknown]
  - Epistaxis [Unknown]
  - Headache [Unknown]
  - Photosensitivity reaction [Unknown]
  - Pruritus [Unknown]
